FAERS Safety Report 23195629 (Version 1)
Quarter: 2023Q4

REPORT INFORMATION
  Report Type: Spontaneous
  Country: CA (occurrence: CA)
  Receive Date: 20231117
  Receipt Date: 20231117
  Transmission Date: 20240110
  Serious: Yes (Hospitalization)
  Sender: FDA-Public Use
  Company Number: CA-HIKMA PHARMACEUTICALS USA INC.-CA-H14001-23-66853

PATIENT

DRUGS (1)
  1. CEFAZOLIN [Suspect]
     Active Substance: CEFAZOLIN
     Indication: Caesarean section
     Dosage: UNKNOWN
     Route: 065

REACTIONS (5)
  - Allergic stomatitis [Unknown]
  - Anaphylactic reaction [Unknown]
  - Rash [Unknown]
  - Urticaria [Unknown]
  - Exposure during pregnancy [Unknown]
